FAERS Safety Report 10015488 (Version 3)
Quarter: 2014Q1

REPORT INFORMATION
  Report Type: Spontaneous
  Country: US (occurrence: US)
  Receive Date: 20140317
  Receipt Date: 20140331
  Transmission Date: 20141002
  Serious: Yes (Death, Hospitalization, Other)
  Sender: FDA-Public Use
  Company Number: PHHY2014US010946

PATIENT
  Age: 67 Year
  Sex: Male

DRUGS (12)
  1. BACLOFEN INTRATHECAL [Suspect]
     Indication: MUSCLE SPASTICITY
     Dosage: 100 UG, DAY
     Route: 037
  2. BACLOFEN INTRATHECAL [Suspect]
     Dosage: 102.93 UG, DAILY
     Route: 037
     Dates: end: 20140116
  3. BACLOFEN INTRATHECAL [Suspect]
     Dosage: 75 UG, DAILY
     Route: 037
     Dates: start: 20140116, end: 20140117
  4. BACLOFEN INTRATHECAL [Suspect]
     Dosage: 102.93 UG, DAILY
     Route: 037
     Dates: start: 20140117
  5. BACLOFEN [Suspect]
     Dosage: 10 MG, PRN (EVERY 4 HOURS AS NEEDED)
     Route: 048
  6. NORTRIPTYLINE [Suspect]
     Dosage: 25 MG, QHS (AT BEDTIME)
  7. PAROXETINE [Suspect]
     Dosage: 40 MG, DAILY
  8. GABAPENTIN [Suspect]
     Dosage: 600 MG, TID
  9. ASPIRIN [Suspect]
     Dosage: 325 MG, DAILY
  10. OXYBUTYNIN [Suspect]
     Dosage: 5 MG, Q12H
  11. OXYCODONE [Suspect]
     Dosage: 5 MG, PRN (EVERY 4 HOURS AS NEEDED)
  12. ZINC [Suspect]
     Dosage: 220 MG, DAILY

REACTIONS (12)
  - Respiratory failure [Fatal]
  - Osteomyelitis [Unknown]
  - Nephrolithiasis [Unknown]
  - Decubitus ulcer [Unknown]
  - Dyskinesia [Unknown]
  - Infection [Unknown]
  - Mental status changes [Unknown]
  - Hypertension [Unknown]
  - Dizziness [Unknown]
  - Muscle spasms [Unknown]
  - Muscle spasticity [Unknown]
  - Drug withdrawal syndrome [Unknown]
